FAERS Safety Report 6307369-1 (Version None)
Quarter: 2009Q3

REPORT INFORMATION
  Report Type: 
  Country: None (occurrence: None)
  Receive Date: 20090810
  Receipt Date: 20090729
  Transmission Date: 20100115
  Serious: Yes (Hospitalization, Other)
  Sender: FDA-Public Use
  Company Number: 2008AL009655

PATIENT
  Age: 56 Year
  Sex: Female
  Weight: 117.028 kg

DRUGS (65)
  1. DIGOXIN [Suspect]
     Dosage: 0.25MG, DAILY, PO
     Route: 048
     Dates: start: 20090401, end: 20090616
  2. PLAVIX [Concomitant]
  3. ISORDIL [Concomitant]
  4. GLYBURIDE [Concomitant]
  5. METFORMIN [Concomitant]
  6. LASIX [Concomitant]
  7. LABETALOL HCL [Concomitant]
  8. IRON SULFATETHIAMIN COMPOUND TAB [Concomitant]
  9. VYTORIN [Concomitant]
  10. CLONIDINE [Concomitant]
  11. BENICAR [Concomitant]
  12. METOLAZONE [Concomitant]
  13. TAZTIA [Concomitant]
  14. HYDRALAZINE HCL [Concomitant]
  15. COUMADIN [Concomitant]
  16. POTASSIUM CHLORIDE [Concomitant]
  17. PACERONE [Concomitant]
  18. DILTIAZEM [Concomitant]
  19. ASPIRIN [Concomitant]
  20. FELODIPINE [Concomitant]
  21. PROPYL-THIOURACIL [Concomitant]
  22. BENAZEPRIL HYDROCHLORIDE [Concomitant]
  23. ISOSORBIDE [Concomitant]
  24. METRONIDAZOLE [Concomitant]
  25. DIFLUCAN [Concomitant]
  26. ZITHROMAX [Concomitant]
  27. CARDIZEM [Concomitant]
  28. NOVOFINE [Concomitant]
  29. ALBUTEROL [Concomitant]
  30. BETAPACE [Concomitant]
  31. CLORAZEPATE DIPOTASSIUM [Concomitant]
  32. ESTRADIOL [Concomitant]
  33. ALPHEGAN [Concomitant]
  34. HUMALOG [Concomitant]
  35. COREG [Concomitant]
  36. CLINDAMYCIN [Concomitant]
  37. AVALIDE [Concomitant]
  38. PROTONIX [Concomitant]
  39. XALATAN [Concomitant]
  40. NORVASC [Concomitant]
  41. PROMETHAZINE [Concomitant]
  42. METOCLOPRAMIDE [Concomitant]
  43. TOPROL-XL [Concomitant]
  44. LABETALOL HCL [Concomitant]
  45. KLOR-CON [Concomitant]
  46. PREMARIN [Concomitant]
  47. TRAMADOL [Concomitant]
  48. LEVAQUIN [Concomitant]
  49. AMIODARONE HCL [Concomitant]
  50. FLUCONAZOLE [Concomitant]
  51. METOLAZONE [Concomitant]
  52. BEXTRA [Concomitant]
  53. LUMIGAN [Concomitant]
  54. MACROBID [Concomitant]
  55. FLUOCINONIDE [Concomitant]
  56. HUMULIN R [Concomitant]
  57. CIPRO [Concomitant]
  58. HYDROXYZINE [Concomitant]
  59. HYDROCORTISONE [Concomitant]
  60. K-DUR [Concomitant]
  61. ZIAC [Concomitant]
  62. HISTINEX [Concomitant]
  63. BISOPROLOL [Concomitant]
  64. CARMOL [Concomitant]
  65. ALTACE [Concomitant]

REACTIONS (20)
  - ANAEMIA [None]
  - ANHEDONIA [None]
  - ANXIETY [None]
  - ATRIOVENTRICULAR BLOCK COMPLETE [None]
  - BRADYCARDIA [None]
  - CHEST PAIN [None]
  - DIARRHOEA [None]
  - ECONOMIC PROBLEM [None]
  - HEART RATE INCREASED [None]
  - HYPERTENSION [None]
  - MICROALBUMINURIA [None]
  - MULTIPLE INJURIES [None]
  - MYOCARDIAL ISCHAEMIA [None]
  - PAIN [None]
  - PALPITATIONS [None]
  - RENAL FAILURE ACUTE [None]
  - RENAL FAILURE CHRONIC [None]
  - SOCIAL PROBLEM [None]
  - SYNCOPE [None]
  - THERAPEUTIC AGENT TOXICITY [None]
